FAERS Safety Report 13558304 (Version 1)
Quarter: 2017Q2

REPORT INFORMATION
  Report Type: Spontaneous
  Country: BR (occurrence: BR)
  Receive Date: 20170517
  Receipt Date: 20170517
  Transmission Date: 20170830
  Serious: Yes (Other)
  Sender: FDA-Public Use
  Company Number: PHHY2017BR067852

PATIENT
  Age: 68 Year
  Sex: Female

DRUGS (1)
  1. SINVASTACOR [Suspect]
     Active Substance: SIMVASTATIN
     Indication: BLOOD CHOLESTEROL
     Dosage: 1 TABLET AFTER DINNER
     Route: 065

REACTIONS (2)
  - Blood pressure abnormal [Unknown]
  - Expired product administered [Unknown]
